FAERS Safety Report 5749679-2 (Version None)
Quarter: 2008Q2

REPORT INFORMATION
  Report Type: 
  Country: None (occurrence: None)
  Receive Date: 20080527
  Receipt Date: 20080523
  Transmission Date: 20081010
  Serious: Yes (Hospitalization)
  Sender: FDA-Public Use
  Company Number: US-BRISTOL-MYERS SQUIBB COMPANY-14204408

PATIENT
  Age: 41 Year
  Sex: Female
  Weight: 108 kg

DRUGS (12)
  1. ABILIFY [Suspect]
     Indication: DEPRESSION
     Dosage: STARTED WITH 10MG APPROX. 18 MONTHS AGO; IN JAN-08, 30MG GIVEN FOR 5-7 DAYS.
     Dates: start: 20080101
  2. KEPPRA [Concomitant]
  3. CORTEF [Concomitant]
  4. ZANAFLEX [Concomitant]
  5. XANAX [Concomitant]
  6. MACROBID [Concomitant]
  7. NEURONTIN [Concomitant]
  8. BUMEX [Concomitant]
  9. PREVACID [Concomitant]
  10. K-DUR [Concomitant]
  11. ULTRAM [Concomitant]
  12. RISPERDAL [Concomitant]

REACTIONS (5)
  - COMMUNICATION DISORDER [None]
  - DISORIENTATION [None]
  - MEDICATION ERROR [None]
  - RENAL FAILURE [None]
  - SEPSIS [None]
